FAERS Safety Report 24275112 (Version 1)
Quarter: 2024Q3

REPORT INFORMATION
  Report Type: Spontaneous
  Country: US (occurrence: None)
  Receive Date: 20240902
  Receipt Date: 20240902
  Transmission Date: 20241017
  Serious: No
  Sender: ASTRAZENECA
  Company Number: 2024A187833

PATIENT

DRUGS (1)
  1. AIRSUPRA [Suspect]
     Active Substance: ALBUTEROL SULFATE\BUDESONIDE
     Route: 055

REACTIONS (5)
  - Cough [Unknown]
  - Visual impairment [Unknown]
  - Speech disorder [Unknown]
  - Device delivery system issue [Unknown]
  - Poor quality device used [Unknown]
